FAERS Safety Report 6275195-8 (Version None)
Quarter: 2009Q3

REPORT INFORMATION
  Report Type: 
  Country: None (occurrence: None)
  Receive Date: 20090721
  Receipt Date: 20090713
  Transmission Date: 20100115
  Serious: Yes (Hospitalization)
  Sender: FDA-Public Use
  Company Number: FR-PURDUE-GBR-2009-0005386

PATIENT
  Sex: Male

DRUGS (3)
  1. SEVREDOL TABLETS 20 MG [Suspect]
     Indication: ANKLE FRACTURE
     Dosage: 20 MG, Q4H PRN
     Route: 048
     Dates: start: 20090628, end: 20090630
  2. SKENAN [Suspect]
     Indication: ANKLE FRACTURE
     Dosage: 60 MG, BID
     Route: 048
     Dates: start: 20090628, end: 20090630
  3. BENZODIAZEPINE DERIVATIVES [Concomitant]

REACTIONS (3)
  - BRADYPNOEA [None]
  - COMA [None]
  - MIOSIS [None]
